FAERS Safety Report 7421245-2 (Version None)
Quarter: 2011Q2

REPORT INFORMATION
  Report Type: 
  Country: None (occurrence: None)
  Receive Date: 20110418
  Receipt Date: 20110411
  Transmission Date: 20111010
  Serious: Yes (Life-Threatening, Hospitalization)
  Sender: FDA-Public Use
  Company Number: ES-JNJFOC-20110405147

PATIENT
  Age: 17 Year
  Sex: Female

DRUGS (1)
  1. MEBENDAZOL [Suspect]
     Indication: FILARIASIS
     Route: 048

REACTIONS (2)
  - OFF LABEL USE [None]
  - ENCEPHALITIS [None]
